FAERS Safety Report 20947075 (Version 1)
Quarter: 2022Q2

REPORT INFORMATION
  Report Type: Report from Study
  Country: CN (occurrence: None)
  Receive Date: 20220610
  Receipt Date: 20220610
  Transmission Date: 20220721
  Serious: Yes (Life-Threatening)
  Sender: FDA-Public Use
  Company Number: 2022A161059

PATIENT
  Age: 24565 Day
  Sex: Male

DRUGS (42)
  1. DURVALUMAB [Suspect]
     Active Substance: DURVALUMAB
     Indication: Non-small cell lung cancer
     Route: 042
     Dates: start: 20220311, end: 20220311
  2. DURVALUMAB [Suspect]
     Active Substance: DURVALUMAB
     Indication: Non-small cell lung cancer
     Route: 042
     Dates: start: 20220401, end: 20220401
  3. TREMELIMUMAB [Suspect]
     Active Substance: TREMELIMUMAB
     Indication: Non-small cell lung cancer
     Route: 042
     Dates: start: 20220311, end: 20220311
  4. TREMELIMUMAB [Suspect]
     Active Substance: TREMELIMUMAB
     Indication: Non-small cell lung cancer
     Route: 042
     Dates: start: 20220401, end: 20220401
  5. GEMCITABINE [Suspect]
     Active Substance: GEMCITABINE
     Indication: Non-small cell lung cancer
     Route: 042
     Dates: start: 20220311, end: 20220311
  6. GEMCITABINE [Suspect]
     Active Substance: GEMCITABINE
     Indication: Non-small cell lung cancer
     Route: 042
     Dates: start: 20220318, end: 20220318
  7. GEMCITABINE [Suspect]
     Active Substance: GEMCITABINE
     Indication: Non-small cell lung cancer
     Route: 042
     Dates: start: 20220401, end: 20220401
  8. GEMCITABINE [Suspect]
     Active Substance: GEMCITABINE
     Indication: Non-small cell lung cancer
     Route: 042
     Dates: start: 20220408, end: 20220408
  9. CISPLATIN [Suspect]
     Active Substance: CISPLATIN
     Indication: Non-small cell lung cancer
     Route: 042
     Dates: start: 20220311, end: 20220311
  10. CISPLATIN [Suspect]
     Active Substance: CISPLATIN
     Indication: Non-small cell lung cancer
     Route: 042
     Dates: start: 20220401, end: 20220401
  11. CISPLATIN [Suspect]
     Active Substance: CISPLATIN
     Indication: Non-small cell lung cancer
     Route: 042
     Dates: start: 20220402, end: 20220402
  12. CISPLATIN [Suspect]
     Active Substance: CISPLATIN
     Indication: Non-small cell lung cancer
     Route: 042
     Dates: start: 20220312, end: 20220312
  13. AMINO ACIDS, SOURCE UNSPECIFIED [Concomitant]
     Active Substance: AMINO ACIDS, SOURCE UNSPECIFIED
     Indication: Prophylaxis
     Route: 042
     Dates: start: 20220401, end: 20220408
  14. AMINO ACIDS, SOURCE UNSPECIFIED [Concomitant]
     Active Substance: AMINO ACIDS, SOURCE UNSPECIFIED
     Indication: Nutritional supplementation
     Route: 042
     Dates: start: 20220401, end: 20220408
  15. AMINO ACIDS, SOURCE UNSPECIFIED [Concomitant]
     Active Substance: AMINO ACIDS, SOURCE UNSPECIFIED
     Indication: Prophylaxis
     Route: 042
     Dates: start: 20220421, end: 20220424
  16. AMINO ACIDS, SOURCE UNSPECIFIED [Concomitant]
     Active Substance: AMINO ACIDS, SOURCE UNSPECIFIED
     Indication: Nutritional supplementation
     Route: 042
     Dates: start: 20220421, end: 20220424
  17. FUROSEMIDE [Concomitant]
     Active Substance: FUROSEMIDE
     Indication: Oedema peripheral
     Dosage: 20.0MG ONCE/SINGLE ADMINISTRATION
     Route: 042
     Dates: start: 20220401, end: 20220401
  18. FUROSEMIDE [Concomitant]
     Active Substance: FUROSEMIDE
     Indication: Polyuria
     Dosage: 20.0MG ONCE/SINGLE ADMINISTRATION
     Route: 042
     Dates: start: 20220401, end: 20220401
  19. METOCLOPRAMIDE HYDROCHLORIDE [Concomitant]
     Active Substance: METOCLOPRAMIDE HYDROCHLORIDE
     Indication: Vomiting
     Route: 030
     Dates: start: 20220401, end: 20220402
  20. METOCLOPRAMIDE HYDROCHLORIDE [Concomitant]
     Active Substance: METOCLOPRAMIDE HYDROCHLORIDE
     Indication: Vomiting
     Route: 030
     Dates: start: 20220408, end: 20220408
  21. TROPISETRON HYDROCHLORIDE INJECTION [Concomitant]
     Indication: Vomiting
     Dosage: 5.0MG ONCE/SINGLE ADMINISTRATION
     Route: 042
     Dates: start: 20220401, end: 20220401
  22. TROPISETRON HYDROCHLORIDE INJECTION [Concomitant]
     Indication: Vomiting
     Dosage: 5.0MG ONCE/SINGLE ADMINISTRATION
     Route: 042
     Dates: start: 20220408, end: 20220408
  23. FORSAPITAN DIMEGLUMINE FOR INJECTION [Concomitant]
     Indication: Vomiting
     Dosage: 150.0MG ONCE/SINGLE ADMINISTRATION
     Route: 042
     Dates: start: 20220408, end: 20220408
  24. ESTAZOLAM [Concomitant]
     Active Substance: ESTAZOLAM
     Indication: Insomnia
     Dosage: 2.0MG ONCE/SINGLE ADMINISTRATION
     Route: 048
     Dates: start: 20220315
  25. VONOPRAZAN FUMARATE  TABLET [Concomitant]
     Indication: Vomiting
     Dosage: 20.0MG ONCE/SINGLE ADMINISTRATION
     Route: 048
     Dates: start: 20220324, end: 20220325
  26. HUMAN GRANULOCYTE-STIMUL ATING FACTOR INJECTION [Concomitant]
     Indication: White blood cell count decreased
     Dosage: 300.0UG/INHAL ONCE/SINGLE ADMINISTRATION
     Route: 058
     Dates: start: 20220330, end: 20220330
  27. HUMAN GRANULOCYTE-STIMUL ATING FACTOR INJECTION [Concomitant]
     Indication: White blood cell count
     Dosage: 300.0UG/INHAL ONCE/SINGLE ADMINISTRATION
     Route: 058
     Dates: start: 20220330, end: 20220330
  28. HUMAN GRANULOCYTE-STIMUL ATING FACTOR INJECTION [Concomitant]
     Indication: White blood cell count decreased
     Dosage: 250.0UG/INHAL ONCE/SINGLE ADMINISTRATION
     Route: 058
     Dates: start: 20220404, end: 20220404
  29. HUMAN GRANULOCYTE-STIMUL ATING FACTOR INJECTION [Concomitant]
     Indication: White blood cell count
     Dosage: 250.0UG/INHAL ONCE/SINGLE ADMINISTRATION
     Route: 058
     Dates: start: 20220404, end: 20220404
  30. PROMETHAZINE [Concomitant]
     Active Substance: PROMETHAZINE HYDROCHLORIDE
     Indication: Acne
     Route: 030
     Dates: start: 20220406, end: 20220408
  31. PROMETHAZINE [Concomitant]
     Active Substance: PROMETHAZINE HYDROCHLORIDE
     Indication: Hypersensitivity
     Route: 030
     Dates: start: 20220406, end: 20220408
  32. PROMETHAZINE [Concomitant]
     Active Substance: PROMETHAZINE HYDROCHLORIDE
     Indication: Antiallergic therapy
     Route: 030
     Dates: start: 20220406, end: 20220408
  33. PROMETHAZINE [Concomitant]
     Active Substance: PROMETHAZINE HYDROCHLORIDE
     Indication: Acne
     Dosage: 25UG/INHAL DAILY
     Route: 030
     Dates: start: 20220421, end: 20220421
  34. PROMETHAZINE [Concomitant]
     Active Substance: PROMETHAZINE HYDROCHLORIDE
     Indication: Hypersensitivity
     Dosage: 25UG/INHAL DAILY
     Route: 030
     Dates: start: 20220421, end: 20220421
  35. PROMETHAZINE [Concomitant]
     Active Substance: PROMETHAZINE HYDROCHLORIDE
     Indication: Antiallergic therapy
     Dosage: 25UG/INHAL DAILY
     Route: 030
     Dates: start: 20220421, end: 20220421
  36. LORATADINE [Concomitant]
     Active Substance: LORATADINE
     Indication: Rash
     Dosage: 10.0MG ONCE/SINGLE ADMINISTRATION
     Route: 048
     Dates: start: 20220409, end: 20220418
  37. HYDROCORTISONE BUTYRATE OINTMENT [Concomitant]
     Indication: Acne
     Dosage: UNKNOWN TWO TIMES A DAY
     Route: 050
     Dates: start: 20220422
  38. FAMOTIDINE [Concomitant]
     Active Substance: FAMOTIDINE
     Indication: Gastritis
     Route: 042
     Dates: start: 20220421, end: 20220424
  39. METHYLPREDNISOLON E SODIUM SUCCINATE FOR INJECTION [Concomitant]
     Indication: Rash
     Route: 042
     Dates: start: 20220422, end: 20220423
  40. METHYLPREDNISOLON E SODIUM SUCCINATE FOR INJECTION [Concomitant]
     Indication: Hormone therapy
     Route: 042
     Dates: start: 20220422, end: 20220423
  41. METHYLPREDNISOLON E SODIUM SUCCINATE FOR INJECTION [Concomitant]
     Indication: Immunology test
     Route: 042
     Dates: start: 20220422, end: 20220423
  42. CODEINE PHOSPHATE [Concomitant]
     Active Substance: CODEINE PHOSPHATE
     Indication: Cough
     Route: 048
     Dates: start: 20220422, end: 20220424

REACTIONS (1)
  - Immune-mediated lung disease [Recovering/Resolving]

NARRATIVE: CASE EVENT DATE: 20220423
